FAERS Safety Report 7819481-6 (Version None)
Quarter: 2011Q4

REPORT INFORMATION
  Report Type: 
  Country: None (occurrence: None)
  Receive Date: 20111018
  Receipt Date: 20110217
  Transmission Date: 20120403
  Serious: No
  Sender: FDA-Public Use
  Company Number: US-ASTRAZENECA-2011SE09352

PATIENT
  Age: 51 Year
  Sex: Female

DRUGS (6)
  1. BLOOD PRESSURE MEDICATION [Concomitant]
  2. SYMBICORT [Suspect]
     Indication: ASTHMA
     Dosage: 160/4.5 TWO TIMES A DAY
     Route: 055
  3. FLUTICASONE PROPIONATE [Concomitant]
  4. FLORAZINE [Concomitant]
  5. PROAIR HFA [Concomitant]
  6. SINGULAIR [Concomitant]

REACTIONS (3)
  - DRUG DOSE OMISSION [None]
  - ASTHMA [None]
  - MALAISE [None]
